FAERS Safety Report 4409122-2 (Version None)
Quarter: 2004Q2

REPORT INFORMATION
  Report Type: 
  Country: None (occurrence: None)
  Receive Date: 20040618
  Receipt Date: 20040511
  Transmission Date: 20050107
  Serious: No
  Sender: FDA-Public Use
  Company Number: US-JNJFOC-20040502321

PATIENT
  Age: 29 Year
  Sex: Female

DRUGS (4)
  1. ORTHO EVRA [Suspect]
     Indication: CONTRACEPTION
     Dosage: 1 DOSE(S), 3 IN 4 WEEK, TRANSDERMAL
     Route: 062
     Dates: start: 20031201
  2. PREDNISONE () PROCAINAMIDE HYDROCHLORIDE [Concomitant]
  3. ALBUTEROL [Concomitant]
  4. DOXYCYLINE HYCLATE [Concomitant]

REACTIONS (1)
  - RASH [None]
